FAERS Safety Report 20960395 (Version 3)
Quarter: 2022Q3

REPORT INFORMATION
  Report Type: Other
  Country: US (occurrence: None)
  Receive Date: 20220615
  Receipt Date: 20220902
  Transmission Date: 20221027
  Serious: Yes (Other)
  Sender: FDA-Public Use
  Company Number: US-ROCHE-3116417

PATIENT
  Age: 31 Year
  Sex: Female
  Weight: 89.438 kg

DRUGS (4)
  1. OCREVUS [Suspect]
     Active Substance: OCRELIZUMAB
     Indication: Secondary progressive multiple sclerosis
     Dosage: INITIAL DOSE: 300 MG
     Route: 042
     Dates: start: 20190313
  2. GABAPENTIN [Concomitant]
     Active Substance: GABAPENTIN
  3. COCONUT [Concomitant]
     Active Substance: COCONUT
  4. BACLOFEN [Concomitant]
     Active Substance: BACLOFEN
     Dosage: 1 AT 10AM AND 1 AT 10PM, CAN TAKE UP TO 3 TIMES A DAY
     Route: 048

REACTIONS (13)
  - COVID-19 [Recovered/Resolved]
  - Eye disorder [Unknown]
  - Arthropathy [Not Recovered/Not Resolved]
  - Urinary tract infection [Recovered/Resolved]
  - Road traffic accident [Unknown]
  - Bone contusion [Recovered/Resolved]
  - Dyspnoea [Recovered/Resolved]
  - Nasopharyngitis [Recovered/Resolved]
  - Foot fracture [Recovered/Resolved]
  - Pain [Recovered/Resolved]
  - White blood cell count increased [Not Recovered/Not Resolved]
  - Scar [Unknown]
  - Arthralgia [Not Recovered/Not Resolved]

NARRATIVE: CASE EVENT DATE: 20220101
